FAERS Safety Report 9920749 (Version 1)
Quarter: 2014Q1

REPORT INFORMATION
  Report Type: Spontaneous
  Country: US (occurrence: US)
  Receive Date: 20140224
  Receipt Date: 20140224
  Transmission Date: 20141002
  Serious: Yes (Congenital Anomaly, Other)
  Sender: FDA-Public Use
  Company Number: US-ELI_LILLY_AND_COMPANY-US201402006551

PATIENT
  Sex: 0

DRUGS (2)
  1. HUMALOG LISPRO [Suspect]
     Indication: GESTATIONAL DIABETES
     Route: 064
  2. HUMALOG LISPRO [Suspect]
     Indication: GESTATIONAL DIABETES
     Route: 064

REACTIONS (2)
  - Polydactyly [Recovered/Resolved]
  - Foetal exposure during pregnancy [Recovered/Resolved]
